FAERS Safety Report 4517314-7 (Version None)
Quarter: 2004Q4

REPORT INFORMATION
  Report Type: 
  Country: None (occurrence: None)
  Receive Date: 20041008
  Receipt Date: 20040625
  Transmission Date: 20050328
  Serious: No
  Sender: FDA-Public Use
  Company Number: 2004S1000143

PATIENT
  Age: 80 Year
  Sex: Female
  Weight: 42.3 kg

DRUGS (2)
  1. CUBICIN [Suspect]
     Indication: INFECTED SKIN ULCER
     Dosage: 4.7 MG/KG; Q24H; IV
     Route: 042
     Dates: start: 20040501
  2. LASIX [Concomitant]

REACTIONS (1)
  - HYPERKALAEMIA [None]
